FAERS Safety Report 7353398 (Version 6)
Quarter: 2012Q4

REPORT INFORMATION
  Report Type: 
  Country: US (occurrence: US)
  Receive Date: 20100413
  Receipt Date: 20121213
  Transmission Date: 20130627
  Serious: Yes (Other)
  Sender: FDA-Public Use
  Company Number: US-BAYER-201018734NA

PATIENT
  Age: 51 Year
  Sex: Male
  Weight: 58.96 kg

DRUGS (18)
  1. MAGNEVIST [Suspect]
     Indication: IMAGING PROCEDURE
     Dosage: 15 ml, ONCE
     Dates: start: 20081003, end: 20081003
  2. MAGNEVIST [Suspect]
     Indication: MRI
  3. MAGNEVIST [Suspect]
     Indication: POLYRADICULOPATHY
  4. GADOLINIUM [Suspect]
     Indication: IMAGING PROCEDURE
  5. METOPROLOL [Concomitant]
     Dates: start: 201009
  6. THEOPHYLLINE [Concomitant]
  7. SPIRIVA [Concomitant]
  8. SYMBICORT [Concomitant]
  9. CELEBREX [Concomitant]
  10. DURAGESIC [Concomitant]
  11. LORTAB [Concomitant]
  12. SOMA [Concomitant]
  13. SKELAXIN [Concomitant]
  14. PAXIL [Concomitant]
  15. AMBIEN [Concomitant]
  16. ULTRAM [Concomitant]
  17. ZANAFLEX [Concomitant]
  18. XOPENEX [Concomitant]
     Indication: COPD

REACTIONS (19)
  - Nephrogenic systemic fibrosis [Not Recovered/Not Resolved]
  - Pain [Not Recovered/Not Resolved]
  - General physical health deterioration [Not Recovered/Not Resolved]
  - Deformity [Not Recovered/Not Resolved]
  - Scar [Not Recovered/Not Resolved]
  - Fibrosis [Not Recovered/Not Resolved]
  - Mobility decreased [Not Recovered/Not Resolved]
  - Rash [Not Recovered/Not Resolved]
  - Pruritus [Not Recovered/Not Resolved]
  - Dry skin [Not Recovered/Not Resolved]
  - Skin hyperpigmentation [Not Recovered/Not Resolved]
  - Skin induration [Not Recovered/Not Resolved]
  - Exfoliative rash [Not Recovered/Not Resolved]
  - Pain in extremity [Not Recovered/Not Resolved]
  - Arthralgia [Not Recovered/Not Resolved]
  - Joint stiffness [Not Recovered/Not Resolved]
  - Dermatitis [Not Recovered/Not Resolved]
  - Pain [Not Recovered/Not Resolved]
  - Oedema peripheral [Not Recovered/Not Resolved]
